FAERS Safety Report 16934151 (Version 2)
Quarter: 2019Q4

REPORT INFORMATION
  Report Type: Spontaneous
  Country: JP (occurrence: JP)
  Receive Date: 20191018
  Receipt Date: 20191023
  Transmission Date: 20200122
  Serious: Yes (Life-Threatening, Hospitalization, Other)
  Sender: FDA-Public Use
  Company Number: JP-AXELLIA-002747

PATIENT
  Age: 65 Year
  Sex: Male

DRUGS (5)
  1. VANCOMYCIN [Suspect]
     Active Substance: VANCOMYCIN
     Indication: STAPHYLOCOCCAL INFECTION
     Dosage: 0.5 G EVERY 2-3 DAYS AFTER DIALYSIS
     Route: 042
  2. MEROPENEM. [Concomitant]
     Active Substance: MEROPENEM
     Route: 042
  3. PIPERACILLIN/TAZOBACTAM [Concomitant]
     Indication: ANTIBIOTIC THERAPY
     Dosage: 4.5 G TWICE DAILY
     Route: 042
  4. PARACETAMOL [Concomitant]
     Active Substance: ACETAMINOPHEN
     Indication: PAIN
  5. LOXOPROFEN [Concomitant]
     Active Substance: LOXOPROFEN
     Indication: PAIN

REACTIONS (2)
  - Eosinophilic pneumonia [Recovered/Resolved]
  - Respiratory failure [Recovering/Resolving]
